FAERS Safety Report 21311393 (Version 1)
Quarter: 2022Q3

REPORT INFORMATION
  Report Type: Spontaneous
  Country: US (occurrence: None)
  Receive Date: 20220908
  Receipt Date: 20220908
  Transmission Date: 20221026
  Serious: No
  Sender: FDA-Public Use
  Company Number: None

PATIENT
  Age: 84 Year
  Sex: Male
  Weight: 58.06 kg

DRUGS (1)
  1. ORENCIA [Suspect]
     Active Substance: ABATACEPT
     Indication: Rheumatoid arthritis
     Dosage: INFUSE 500MG INTRAVENOUSLY OVER 1 HOUR AT WEEK 0, 2 AND 4 AS DIRECTED.??THERAPY DATE - ON HOLD?
     Route: 042
     Dates: start: 202206

REACTIONS (2)
  - Food poisoning [None]
  - Therapy interrupted [None]
